FAERS Safety Report 13838503 (Version 1)
Quarter: 2017Q3

REPORT INFORMATION
  Report Type: Spontaneous
  Country: US (occurrence: US)
  Receive Date: 20170804
  Receipt Date: 20170804
  Transmission Date: 20171127
  Serious: Yes (Other)
  Sender: FDA-Public Use
  Company Number: None

PATIENT
  Age: 56 Year
  Sex: Male
  Weight: 60.75 kg

DRUGS (22)
  1. FERROUS SULFATE. [Concomitant]
     Active Substance: FERROUS SULFATE
  2. ARMOUR THYROID [Concomitant]
     Active Substance: THYROID, PORCINE
  3. AMBIEN [Concomitant]
     Active Substance: ZOLPIDEM TARTRATE
  4. EPIPEN [Concomitant]
     Active Substance: EPINEPHRINE
  5. ZYRTEC [Concomitant]
     Active Substance: CETIRIZINE HYDROCHLORIDE
  6. XOLAIR [Suspect]
     Active Substance: OMALIZUMAB
     Indication: IDIOPATHIC URTICARIA
     Dosage: ?          QUANTITY:2 INJECTION(S);OTHER FREQUENCY:MONTHLY;?
     Route: 030
     Dates: start: 20170209, end: 20170627
  7. ATORVASTATIN [Concomitant]
     Active Substance: ATORVASTATIN
  8. EXCEDRIN EXTRA STRENGTH [Concomitant]
     Active Substance: ACETAMINOPHEN\ASPIRIN\CAFFEINE
  9. SUPER B COMPLEX WITH VITAMIN C [Concomitant]
  10. AMITIZA [Concomitant]
     Active Substance: LUBIPROSTONE
  11. IMITREX [Concomitant]
     Active Substance: SUMATRIPTAN SUCCINATE
  12. VITAMIN C [Concomitant]
     Active Substance: ASCORBIC ACID
  13. METFORMIN [Concomitant]
     Active Substance: METFORMIN HYDROCHLORIDE
  14. PANTOPRAZOLE [Concomitant]
     Active Substance: PANTOPRAZOLE
  15. DIAZEPAM. [Concomitant]
     Active Substance: DIAZEPAM
  16. LAMICTAL [Concomitant]
     Active Substance: LAMOTRIGINE
  17. ONDANSETRON [Concomitant]
     Active Substance: ONDANSETRON
  18. LEVALBUTEROL. [Concomitant]
     Active Substance: LEVALBUTEROL
  19. ZINC. [Concomitant]
     Active Substance: ZINC
  20. FISH OIL [Concomitant]
     Active Substance: FISH OIL
  21. BUSPAR [Concomitant]
     Active Substance: BUSPIRONE HYDROCHLORIDE
  22. PROAIR HFA [Concomitant]
     Active Substance: ALBUTEROL SULFATE

REACTIONS (3)
  - Back pain [None]
  - Vein rupture [None]
  - Contusion [None]

NARRATIVE: CASE EVENT DATE: 20170612
